FAERS Safety Report 10206541 (Version 12)
Quarter: 2016Q1

REPORT INFORMATION
  Report Type: Spontaneous
  Country: US (occurrence: US)
  Receive Date: 20140530
  Receipt Date: 20160113
  Transmission Date: 20160525
  Serious: Yes (Hospitalization)
  Sender: FDA-Public Use
  Company Number: US-GLAXOSMITHKLINE-A1028041A

PATIENT
  Age: 48 Year
  Sex: Female

DRUGS (13)
  1. FLOLAN [Suspect]
     Active Substance: EPOPROSTENOL SODIUM
     Dosage: 44 NG/KG/MIN, CO
     Route: 042
  2. SILDENAFIL. [Concomitant]
     Active Substance: SILDENAFIL
  3. ELIQUIS [Suspect]
     Active Substance: APIXABAN
     Indication: PRODUCT USED FOR UNKNOWN INDICATION
     Dosage: UNK
  4. FLOLAN [Suspect]
     Active Substance: EPOPROSTENOL SODIUM
     Dosage: UNK
  5. FLOLAN [Suspect]
     Active Substance: EPOPROSTENOL SODIUM
     Dosage: 50 DF, CO
  6. FLOLAN [Suspect]
     Active Substance: EPOPROSTENOL SODIUM
     Indication: PULMONARY ARTERIAL HYPERTENSION
     Dosage: 24 NG/KG/MIN CONTINUOUSLY (CONCENTRATION 30,000 NG/ML; 1.5 MG VIAL STRENGTH)30 NG/KG/MIN (45,00[...]
     Route: 042
     Dates: start: 20130327
  7. FLOLAN [Suspect]
     Active Substance: EPOPROSTENOL SODIUM
     Dosage: UNK, Z
  8. COUMADIN [Concomitant]
     Active Substance: WARFARIN SODIUM
  9. FLOLAN [Suspect]
     Active Substance: EPOPROSTENOL SODIUM
     Dosage: UNK
  10. FLOLAN [Suspect]
     Active Substance: EPOPROSTENOL SODIUM
     Dosage: 50 NG/KG/MIN, CO
     Route: 042
  11. FLOLAN [Suspect]
     Active Substance: EPOPROSTENOL SODIUM
     Dosage: 30 NG/KG/MIN CONTINUOUSLY
  12. FLOLAN [Suspect]
     Active Substance: EPOPROSTENOL SODIUM
     Dosage: 50 NG/KG/MIN (CONCENTRATION 60,000 NG/ML, PUMP RATE 94 ML/DAY, VIAL STRENGTH 1.5 MG), CO
     Route: 042
  13. REVATIO [Concomitant]
     Active Substance: SILDENAFIL CITRATE

REACTIONS (25)
  - Application site erythema [Unknown]
  - Myalgia [Unknown]
  - Localised infection [Unknown]
  - Flushing [Unknown]
  - Device issue [Recovered/Resolved]
  - Nausea [Unknown]
  - Erythema [Unknown]
  - Device alarm issue [Unknown]
  - Application site irritation [Unknown]
  - Catheter site erythema [Unknown]
  - Amnesia [Unknown]
  - Abdominal discomfort [Unknown]
  - Weight decreased [Unknown]
  - Pain in jaw [Unknown]
  - Device leakage [Recovered/Resolved]
  - Complication associated with device [Unknown]
  - Feeling hot [Unknown]
  - Skin irritation [Unknown]
  - Dry skin [Unknown]
  - Catheter site pruritus [Unknown]
  - Abdominal pain [Unknown]
  - Headache [Unknown]
  - Emergency care [Unknown]
  - Pruritus [Unknown]
  - Incorrect dose administered [Recovered/Resolved]

NARRATIVE: CASE EVENT DATE: 2013
